FAERS Safety Report 13191069 (Version 3)
Quarter: 2017Q1

REPORT INFORMATION
  Report Type: Report from Study
  Country: None (occurrence: ES)
  Receive Date: 20170207
  Receipt Date: 20170301
  Transmission Date: 20170428
  Serious: Yes (Life-Threatening, Hospitalization, Other)
  Sender: FDA-Public Use
  Company Number: ES-ABBVIE-15P-144-1439753-00

PATIENT
  Age: 60 Year
  Sex: Male

DRUGS (2)
  1. DUODOPA [Suspect]
     Active Substance: CARBIDOPA\LEVODOPA
     Indication: PARKINSON^S DISEASE
     Route: 050
     Dates: start: 201402
  2. ACENOCOUMAROL (SINTROM) [Concomitant]
     Active Substance: ACENOCOUMAROL
     Indication: PRODUCT USED FOR UNKNOWN INDICATION

REACTIONS (15)
  - Stoma site extravasation [Not Recovered/Not Resolved]
  - Stoma site inflammation [Recovering/Resolving]
  - Stoma site haemorrhage [Not Recovered/Not Resolved]
  - Stoma site infection [Not Recovered/Not Resolved]
  - Nasopharyngitis [Unknown]
  - Crepitations [Recovering/Resolving]
  - Impaired healing [Recovered/Resolved]
  - Granuloma [Not Recovered/Not Resolved]
  - Stoma site induration [Recovering/Resolving]
  - Drug ineffective [Recovered/Resolved]
  - Inflammation [Recovering/Resolving]
  - Stoma site ulcer [Recovering/Resolving]
  - Stoma site hypergranulation [Not Recovered/Not Resolved]
  - Oesophageal perforation [Recovering/Resolving]
  - Fungal infection [Not Recovered/Not Resolved]

NARRATIVE: CASE EVENT DATE: 201505
